FAERS Safety Report 24967438 (Version 1)
Quarter: 2025Q1

REPORT INFORMATION
  Report Type: Spontaneous
  Country: DE (occurrence: DE)
  Receive Date: 20250214
  Receipt Date: 20250214
  Transmission Date: 20250408
  Serious: No
  Sender: ALKEM
  Company Number: DE-ALKEM LABORATORIES LIMITED-DE-ALKEM-2024-00677

PATIENT
  Age: 22 Year
  Sex: Female
  Weight: 52 kg

DRUGS (15)
  1. FINGOLIMOD [Suspect]
     Active Substance: FINGOLIMOD
     Indication: Relapsing multiple sclerosis
     Dosage: 0.56 MILLIGRAM, QD
     Route: 048
     Dates: start: 20201210
  2. OCREVUS [Suspect]
     Active Substance: OCRELIZUMAB
     Indication: Relapsing multiple sclerosis
     Dosage: 300 MILLIGRAM, ONCE IN 2 WEEKS
     Route: 042
     Dates: start: 20221118, end: 20221202
  3. OCREVUS [Suspect]
     Active Substance: OCRELIZUMAB
     Route: 042
     Dates: start: 20230608
  4. BACLOFEN [Concomitant]
     Active Substance: BACLOFEN
     Indication: Pain
     Dosage: 25 MILLIGRAM, QD
     Route: 048
     Dates: start: 20201223
  5. BACLOFEN [Concomitant]
     Active Substance: BACLOFEN
     Route: 048
  6. Cimetidin [Concomitant]
     Indication: Premedication
     Route: 042
     Dates: start: 20221118
  7. Comirnaty [Concomitant]
     Indication: COVID-19 immunisation
     Route: 030
     Dates: start: 20210520, end: 20210520
  8. CHOLECALCIFEROL [Concomitant]
     Active Substance: CHOLECALCIFEROL
     Indication: Vitamin D deficiency
     Dosage: UNK, ONCE WEEKLY
     Route: 048
  9. FINGOLIMOD [Concomitant]
     Active Substance: FINGOLIMOD
     Indication: Multiple sclerosis
     Route: 048
     Dates: start: 20201210, end: 20220307
  10. IBUPROFEN [Concomitant]
     Active Substance: IBUPROFEN
     Indication: Prophylaxis
     Route: 048
  11. PFIZER-BIONTECH COVID-19 VACCINE [Concomitant]
     Active Substance: TOZINAMERAN
     Indication: COVID-19 immunisation
     Dosage: UNK, QD (EVERY 1 DAY)
     Route: 030
     Dates: start: 20210701, end: 20210701
  12. PFIZER-BIONTECH COVID-19 VACCINE [Concomitant]
     Active Substance: TOZINAMERAN
     Dosage: UNK, QD (EVERY 1 DAY)
     Route: 030
     Dates: start: 20211222, end: 20211222
  13. PREGABALIN [Concomitant]
     Active Substance: PREGABALIN
     Indication: Pain
     Dosage: 300 MILLIGRAM (EVERY 0.5 DAY)
     Route: 048
  14. PREGABALIN [Concomitant]
     Active Substance: PREGABALIN
     Dosage: 75 MILLIGRAM, QD (EVERY 1 DAY)
     Route: 048
     Dates: start: 20220328
  15. RESTORIL [Concomitant]
     Active Substance: TEMAZEPAM
     Indication: Sleep disorder
     Route: 065
     Dates: start: 20240924

REACTIONS (12)
  - Adjustment disorder [Unknown]
  - Blood creatinine decreased [Recovered/Resolved]
  - Basophil count decreased [Recovered/Resolved]
  - Neutrophil count decreased [Recovered/Resolved]
  - White blood cell count decreased [Recovered/Resolved]
  - CD19 lymphocytes decreased [Unknown]
  - T-lymphocyte count decreased [Unknown]
  - COVID-19 [Recovered/Resolved]
  - Lymphocyte count decreased [Recovered/Resolved]
  - Nasopharyngitis [Recovered/Resolved]
  - Sinusitis [Recovered/Resolved]
  - Sinusitis [Recovered/Resolved]

NARRATIVE: CASE EVENT DATE: 20231205
